FAERS Safety Report 7943592-8 (Version None)
Quarter: 2011Q4

REPORT INFORMATION
  Report Type: 
  Country: None (occurrence: None)
  Receive Date: 20111128
  Receipt Date: 20111117
  Transmission Date: 20120403
  Serious: Yes (Hospitalization)
  Sender: FDA-Public Use
  Company Number: ES-ELI_LILLY_AND_COMPANY-ES201111005770

PATIENT
  Sex: Female
  Weight: 75 kg

DRUGS (6)
  1. ACETAMINOPHEN [Concomitant]
     Indication: ANALGESIC THERAPY
     Dosage: 1 G, OTHER EVERY SIX HOURS IF NEEDED
     Route: 048
  2. FORTEO [Suspect]
     Indication: OSTEOPOROSIS
     Dosage: 20 UG, QD
     Route: 058
     Dates: start: 20110923, end: 20111031
  3. NATECAL D [Concomitant]
     Indication: OSTEOPOROSIS
     Dosage: 1 DF, BID
     Route: 048
  4. NOLOTIL [Concomitant]
     Indication: ANALGESIC THERAPY
     Dosage: 1 DF, OTHER EVERY SIX HOURS IF NEEDED
     Route: 048
  5. NEURONTIN [Concomitant]
     Indication: NERVE INJURY
     Dosage: 1 DF, QD
     Route: 048
  6. FERROUS SULFATE TAB [Concomitant]
     Indication: ANAEMIA
     Dosage: 1 DF, EVERY 8 HRS
     Route: 048
     Dates: start: 20111101

REACTIONS (1)
  - DEVICE DISLOCATION [None]
